FAERS Safety Report 24361884 (Version 2)
Quarter: 2025Q4

REPORT INFORMATION
  Report Type: Spontaneous
  Country: US (occurrence: US)
  Receive Date: 20240925
  Receipt Date: 20251006
  Transmission Date: 20260118
  Serious: No
  Sender: AMGEN
  Company Number: US-AMGEN-USASP2024189554

PATIENT
  Sex: Male

DRUGS (10)
  1. OTEZLA [Suspect]
     Active Substance: APREMILAST
     Indication: Psoriatic arthropathy
     Dosage: 30 MILLIGRAM, BID
     Route: 048
     Dates: start: 20171024
  2. PREDNISONE [Suspect]
     Active Substance: PREDNISONE
     Indication: Product used for unknown indication
     Dosage: 50 MILLIGRAM
     Route: 065
  3. AZELASTINE [Concomitant]
     Active Substance: AZELASTINE
     Dosage: UNK
     Route: 065
  4. FLUTICASONE [Concomitant]
     Active Substance: FLUTICASONE
     Dosage: 50 MICROGRAM
  5. IBUPROFEN [Concomitant]
     Active Substance: IBUPROFEN
     Dosage: 800 MILLIGRAM
     Route: 065
  6. VITAMIN D [Concomitant]
     Active Substance: VITAMIN D NOS
     Dosage: 50000 UNIT
     Route: 065
  7. CALCIPOTRIENE [Concomitant]
     Active Substance: CALCIPOTRIENE
  8. CLOBETASOL [Concomitant]
     Active Substance: CLOBETASOL
     Dosage: 0.05 PERCENT
  9. Peg 3350, sodium sulfate, sodium chloride, potassium chloride, sodium [Concomitant]
  10. TRIAMCINOLONE [Concomitant]
     Active Substance: TRIAMCINOLONE

REACTIONS (2)
  - Therapy non-responder [Unknown]
  - Pain [Unknown]
